FAERS Safety Report 5960851-9 (Version None)
Quarter: 2008Q4

REPORT INFORMATION
  Report Type: 
  Country: None (occurrence: None)
  Receive Date: 20081114
  Receipt Date: 20081009
  Transmission Date: 20090506
  Serious: No
  Sender: FDA-Public Use
  Company Number: PHEH2008US09088

PATIENT
  Sex: Female

DRUGS (1)
  1. TEKTURNA HCT [Suspect]
     Dosage: 150MG ALISK., 12.5MG HCT

REACTIONS (1)
  - DRUG DISPENSING ERROR [None]
